FAERS Safety Report 6412862-7 (Version None)
Quarter: 2009Q4

REPORT INFORMATION
  Report Type: 
  Country: None (occurrence: None)
  Receive Date: 20091023
  Receipt Date: 20091008
  Transmission Date: 20100525
  Serious: Yes (Other)
  Sender: FDA-Public Use
  Company Number: JP-GENENTECH-288328

PATIENT
  Age: 59 Year
  Sex: Male

DRUGS (2)
  1. AVASTIN [Suspect]
     Indication: LARGE INTESTINE CARCINOMA
     Route: 041
  2. FLUOROURACIL [Concomitant]
     Indication: LARGE INTESTINE CARCINOMA

REACTIONS (1)
  - INTERSTITIAL LUNG DISEASE [None]
